FAERS Safety Report 6866077-9 (Version None)
Quarter: 2010Q3

REPORT INFORMATION
  Report Type: 
  Country: None (occurrence: None)
  Receive Date: 20100722
  Receipt Date: 20100720
  Transmission Date: 20110219
  Serious: Yes (Death)
  Sender: FDA-Public Use
  Company Number: PHHY2010CA46208

PATIENT
  Sex: Male

DRUGS (5)
  1. CLOZARIL [Suspect]
     Indication: SCHIZOAFFECTIVE DISORDER
     Dosage: 200 MG, BID
     Route: 048
     Dates: start: 20021001
  2. ZYPREXA [Concomitant]
     Dosage: 20 MG, QHS
  3. SEROQUEL [Concomitant]
     Dosage: 50 MG BID AND 350 MG QHS AND 25 MG TID PRN
  4. EPIVAL [Concomitant]
     Dosage: 750 MG AM AND 1000 MG QHS
  5. ATROPINE [Concomitant]
     Dosage: 2 DROPS UNDER THE TONGUE HS

REACTIONS (1)
  - DEATH [None]
